FAERS Safety Report 18773717 (Version 1)
Quarter: 2021Q1

REPORT INFORMATION
  Report Type: Spontaneous
  Country: US (occurrence: US)
  Receive Date: 20210121
  Receipt Date: 20210121
  Transmission Date: 20210419
  Serious: Yes (Other)
  Sender: FDA-Public Use
  Company Number: None

PATIENT
  Age: 71 Year
  Sex: Male

DRUGS (2)
  1. VANCOMYCIN (VANCOMYCIN HCL 1GM/VIL INJ) [Suspect]
     Active Substance: VANCOMYCIN HYDROCHLORIDE
     Route: 042
     Dates: start: 20201014, end: 20201019
  2. MEROPENEM (MEROPENEM 1GM/VIL INJ) [Suspect]
     Active Substance: MEROPENEM
     Route: 042
     Dates: start: 20201018, end: 20201018

REACTIONS (4)
  - Acute kidney injury [None]
  - Eosinophilia [None]
  - Blood urea increased [None]
  - Blood creatinine increased [None]

NARRATIVE: CASE EVENT DATE: 20201030
